FAERS Safety Report 7268336-7 (Version None)
Quarter: 2011Q1

REPORT INFORMATION
  Report Type: 
  Country: None (occurrence: None)
  Receive Date: 20110201
  Receipt Date: 20110118
  Transmission Date: 20110831
  Serious: No
  Sender: FDA-Public Use
  Company Number: US-B.I. PHARMACEUTICALS,INC./RIDGEFIELD-2011-BP-01396BP

PATIENT
  Sex: Female

DRUGS (14)
  1. TRICOR [Concomitant]
     Indication: BLOOD TRIGLYCERIDES INCREASED
     Dosage: 48 MG
     Route: 048
  2. RAMIPRIL [Concomitant]
     Indication: HYPERTENSION
     Dosage: 2.5 MG
     Route: 048
  3. DIGOXIN [Concomitant]
     Indication: ATRIAL FIBRILLATION
     Dosage: 0.125 MG
     Route: 048
  4. PAROXETINE HCL [Concomitant]
     Indication: IRRITABLE BOWEL SYNDROME
     Dosage: 20 MG
     Route: 048
  5. PRAVASTATIN [Concomitant]
     Indication: BLOOD CHOLESTEROL INCREASED
     Dosage: 20 MG
     Route: 048
  6. QUESTRAN [Concomitant]
     Indication: IRRITABLE BOWEL SYNDROME
     Route: 048
  7. FAMOTIDINE [Concomitant]
     Indication: GASTRITIS EROSIVE
     Dosage: 40 MG
     Route: 048
  8. CALCIUM CITRATE [Concomitant]
     Indication: PROPHYLAXIS
     Route: 048
  9. AZITHROMYCIN [Concomitant]
     Indication: PNEUMONIA
     Route: 048
     Dates: start: 20110101, end: 20110110
  10. METOPROLOL [Concomitant]
     Indication: HYPERTENSION
     Dosage: 50 MG
     Route: 048
  11. CENTRUM SILVER [Concomitant]
     Indication: PROPHYLAXIS
     Route: 048
  12. MULTAQ [Concomitant]
     Indication: ATRIAL FIBRILLATION
     Dosage: 800 MG
     Route: 048
     Dates: start: 20110101
  13. PRADAXA [Suspect]
     Indication: ATRIAL FIBRILLATION
     Dosage: 300 MG
     Route: 048
     Dates: start: 20110101
  14. VITAMIN D [Concomitant]
     Indication: PROPHYLAXIS
     Route: 048

REACTIONS (6)
  - AMNESIA [None]
  - MEMORY IMPAIRMENT [None]
  - FATIGUE [None]
  - WEIGHT DECREASED [None]
  - DECREASED APPETITE [None]
  - DIARRHOEA [None]
